FAERS Safety Report 10525832 (Version 1)
Quarter: 2014Q4

REPORT INFORMATION
  Report Type: Spontaneous
  Country: DE (occurrence: DE)
  Receive Date: 20141017
  Receipt Date: 20141017
  Transmission Date: 20150528
  Serious: Yes (Hospitalization)
  Sender: FDA-Public Use
  Company Number: GXKR2014DE003836

PATIENT
  Sex: Male

DRUGS (1)
  1. VALSARTAN HEXAL [Suspect]
     Active Substance: VALSARTAN
     Indication: CARDIAC FAILURE
     Dosage: 80 MG, UNK
     Route: 048

REACTIONS (3)
  - Arrhythmia [Unknown]
  - Restlessness [Unknown]
  - Product substitution issue [Unknown]
